FAERS Safety Report 14088700 (Version 2)
Quarter: 2017Q4

REPORT INFORMATION
  Report Type: Report from Study
  Country: US (occurrence: US)
  Receive Date: 20171013
  Receipt Date: 20171017
  Transmission Date: 20180321
  Serious: Yes (Other)
  Sender: FDA-Public Use
  Company Number: US-SA-2017SA197940

PATIENT
  Age: 57 Year
  Sex: Female

DRUGS (12)
  1. PROAIR HFA [Concomitant]
     Active Substance: ALBUTEROL SULFATE
  2. VITAMIN D2 [Concomitant]
     Active Substance: ERGOCALCIFEROL
  3. DUPIXENT [Suspect]
     Active Substance: DUPILUMAB
     Indication: DERMATITIS ATOPIC
     Route: 058
     Dates: start: 20170819
  4. IPRATROPIUM [Concomitant]
     Active Substance: IPRATROPIUM
  5. DEXILANT [Concomitant]
     Active Substance: DEXLANSOPRAZOLE
  6. HYDROCORTISONE. [Concomitant]
     Active Substance: HYDROCORTISONE
  7. BELSOMRA [Concomitant]
     Active Substance: SUVOREXANT
  8. PANTOPRAZOLE [Concomitant]
     Active Substance: PANTOPRAZOLE
  9. TRIAMCINOLONE [Concomitant]
     Active Substance: TRIAMCINOLONE
  10. CLOBETASOL [Concomitant]
     Active Substance: CLOBETASOL
  11. BENZONATATE. [Concomitant]
     Active Substance: BENZONATATE
  12. DUPIXENT [Suspect]
     Active Substance: DUPILUMAB
     Indication: DERMATITIS ATOPIC
     Route: 058
     Dates: start: 20170804, end: 20170804

REACTIONS (4)
  - Impaired gastric emptying [Unknown]
  - Dry eye [Recovering/Resolving]
  - Nausea [Unknown]
  - Corneal abrasion [Recovering/Resolving]

NARRATIVE: CASE EVENT DATE: 20171011
